FAERS Safety Report 9441556 (Version 5)
Quarter: 2013Q3

REPORT INFORMATION
  Report Type: Spontaneous
  Country: JP (occurrence: JP)
  Receive Date: 20130805
  Receipt Date: 20130926
  Transmission Date: 20140515
  Serious: Yes (Other)
  Sender: FDA-Public Use
  Company Number: JP-AMGEN-JPNSP2013054183

PATIENT
  Age: 83 Year
  Sex: Male

DRUGS (2)
  1. ARANESP [Suspect]
     Indication: NEPHROGENIC ANAEMIA
     Dosage: 60 MUG, QWK
     Route: 040
  2. ARANESP [Suspect]
     Dosage: 90 MUG, QWK
     Route: 040
     Dates: start: 20130713

REACTIONS (1)
  - Aplasia pure red cell [Unknown]
